FAERS Safety Report 5818217-8 (Version None)
Quarter: 2008Q3

REPORT INFORMATION
  Report Type: 
  Country: None (occurrence: None)
  Receive Date: 20080722
  Receipt Date: 20080410
  Transmission Date: 20090109
  Serious: No
  Sender: FDA-Public Use
  Company Number: US-BAYER-200810105BCC

PATIENT
  Age: 20 Year
  Sex: Male
  Weight: 86 kg

DRUGS (2)
  1. ALEVE [Suspect]
     Indication: MALAISE
     Dosage: UNIT DOSE: 220 MG
     Route: 048
     Dates: start: 20080104
  2. TYLENOL [Concomitant]
     Route: 048

REACTIONS (1)
  - CHEST PAIN [None]
